FAERS Safety Report 16084872 (Version 2)
Quarter: 2019Q1

REPORT INFORMATION
  Report Type: Report from Study
  Country: None (occurrence: ES)
  Receive Date: 20190318
  Receipt Date: 20190329
  Transmission Date: 20190418
  Serious: Yes (Death)
  Sender: FDA-Public Use
  Company Number: ES-ABBVIE-19S-144-2708669-00

PATIENT
  Age: 64 Year
  Sex: Female

DRUGS (1)
  1. DUODOPA [Suspect]
     Active Substance: CARBIDOPA\LEVODOPA
     Indication: PARKINSON^S DISEASE
     Route: 050
     Dates: start: 20161020, end: 20190304

REACTIONS (4)
  - Decreased appetite [Fatal]
  - General physical health deterioration [Fatal]
  - Cardio-respiratory arrest [Fatal]
  - Hallucination [Fatal]

NARRATIVE: CASE EVENT DATE: 20190304
